FAERS Safety Report 7819562-7 (Version None)
Quarter: 2011Q4

REPORT INFORMATION
  Report Type: 
  Country: None (occurrence: None)
  Receive Date: 20111013
  Receipt Date: 20110930
  Transmission Date: 20120403
  Serious: Yes (Other)
  Sender: FDA-Public Use
  Company Number: 2011-3783

PATIENT
  Age: 57 Year
  Sex: Female
  Weight: 58 kg

DRUGS (5)
  1. VICODIN [Concomitant]
  2. ESTRADIOL [Concomitant]
  3. UNSPECIFIED NUMBING PRE-MEDICATION(ANAESTHETICS FOR TOPICAL USE) [Concomitant]
  4. DYSPORT [Suspect]
     Indication: OFF LABEL USE
     Dosage: (,SINGLE CYCLE), LATE DEC/2009- LATE DEC/2009
     Dates: start: 20091201, end: 20091201
  5. DYSPORT [Suspect]
     Indication: SKIN WRINKLING
     Dosage: (,SINGLE CYCLE), LATE DEC/2009- LATE DEC/2009
     Dates: start: 20091201, end: 20091201

REACTIONS (8)
  - EXTRANODAL MARGINAL ZONE B-CELL LYMPHOMA (MALT TYPE) [None]
  - MEMORY IMPAIRMENT [None]
  - EMPHYSEMA [None]
  - PNEUMONIA [None]
  - EXOPHTHALMOS [None]
  - INJECTION SITE SWELLING [None]
  - DRUG INEFFECTIVE [None]
  - OCULAR HYPERAEMIA [None]
